FAERS Safety Report 6738422-6 (Version None)
Quarter: 2010Q2

REPORT INFORMATION
  Report Type: 
  Country: None (occurrence: None)
  Receive Date: 20100520
  Receipt Date: 20100510
  Transmission Date: 20101027
  Serious: Yes (Hospitalization, Other)
  Sender: FDA-Public Use
  Company Number: DSA_43148_2010

PATIENT
  Age: 59 Year
  Sex: Male

DRUGS (3)
  1. ELONTRIL (BUPROPION HYDROCHLORIDE) (NOT SPECIFIED) [Suspect]
     Indication: MAJOR DEPRESSION
     Dosage: (150 MG QD ORAL)
     Route: 048
     Dates: start: 20090701, end: 20090701
  2. RISPERIDONE [Concomitant]
  3. LORAZEPAM [Concomitant]

REACTIONS (10)
  - ALANINE AMINOTRANSFERASE INCREASED [None]
  - ASPARTATE AMINOTRANSFERASE INCREASED [None]
  - BLOOD ALKALINE PHOSPHATASE INCREASED [None]
  - BLOOD BILIRUBIN INCREASED [None]
  - CHILLS [None]
  - GAMMA-GLUTAMYLTRANSFERASE INCREASED [None]
  - HAEMANGIOMA OF LIVER [None]
  - JAUNDICE [None]
  - LIVER INJURY [None]
  - PYREXIA [None]
